FAERS Safety Report 23626412 (Version 1)
Quarter: 2024Q1

REPORT INFORMATION
  Report Type: Spontaneous
  Country: US (occurrence: None)
  Receive Date: 20240312
  Receipt Date: 20240312
  Transmission Date: 20240410
  Serious: Yes (Other)
  Sender: FDA-Public Use
  Company Number: None

PATIENT
  Age: 47 Year
  Sex: Male
  Weight: 104 kg

DRUGS (1)
  1. CABENUVA [Suspect]
     Active Substance: CABOTEGRAVIR\RILPIVIRINE
     Indication: HIV infection
     Dosage: OTHER FREQUENCY : EVERY 2 MONTHS;?
     Route: 030
     Dates: start: 20221116, end: 20230823

REACTIONS (5)
  - Product substitution issue [None]
  - Blood HIV RNA [None]
  - Drug resistance [None]
  - Virologic failure [None]
  - Wrong technique in product usage process [None]

NARRATIVE: CASE EVENT DATE: 20230509
